FAERS Safety Report 26194737 (Version 1)
Quarter: 2025Q4

REPORT INFORMATION
  Report Type: Spontaneous
  Country: MN (occurrence: MN)
  Receive Date: 20251224
  Receipt Date: 20251224
  Transmission Date: 20260117
  Serious: Yes (Death)
  Sender: MYLAN
  Company Number: MN-MYLANLABS-2025M1108797

PATIENT
  Age: 6 Year
  Sex: Female

DRUGS (12)
  1. SILDENAFIL [Suspect]
     Active Substance: SILDENAFIL
     Indication: Pulmonary arterial hypertension
     Dosage: 1 MILLIGRAM/KILOGRAM, QD
  2. SILDENAFIL [Suspect]
     Active Substance: SILDENAFIL
     Dosage: 1 MILLIGRAM/KILOGRAM, QD
     Route: 065
  3. SILDENAFIL [Suspect]
     Active Substance: SILDENAFIL
     Dosage: 1 MILLIGRAM/KILOGRAM, QD
     Route: 065
  4. SILDENAFIL [Suspect]
     Active Substance: SILDENAFIL
     Dosage: 1 MILLIGRAM/KILOGRAM, QD
  5. FUROSEMIDE [Suspect]
     Active Substance: FUROSEMIDE
     Indication: Pulmonary arterial hypertension
     Dosage: 1 MILLIGRAM/KILOGRAM, QD
  6. FUROSEMIDE [Suspect]
     Active Substance: FUROSEMIDE
     Dosage: 1 MILLIGRAM/KILOGRAM, QD
     Route: 065
  7. FUROSEMIDE [Suspect]
     Active Substance: FUROSEMIDE
     Dosage: 1 MILLIGRAM/KILOGRAM, QD
     Route: 065
  8. FUROSEMIDE [Suspect]
     Active Substance: FUROSEMIDE
     Dosage: 1 MILLIGRAM/KILOGRAM, QD
  9. CAPTOPRIL [Suspect]
     Active Substance: CAPTOPRIL
     Indication: Pulmonary arterial hypertension
     Dosage: 1 MILLIGRAM/KILOGRAM, QD
  10. CAPTOPRIL [Suspect]
     Active Substance: CAPTOPRIL
     Dosage: 1 MILLIGRAM/KILOGRAM, QD
     Route: 065
  11. CAPTOPRIL [Suspect]
     Active Substance: CAPTOPRIL
     Dosage: 1 MILLIGRAM/KILOGRAM, QD
     Route: 065
  12. CAPTOPRIL [Suspect]
     Active Substance: CAPTOPRIL
     Dosage: 1 MILLIGRAM/KILOGRAM, QD

REACTIONS (1)
  - Drug ineffective [Fatal]
